FAERS Safety Report 23669660 (Version 1)
Quarter: 2024Q1

REPORT INFORMATION
  Report Type: Spontaneous
  Country: GB (occurrence: GB)
  Receive Date: 20240325
  Receipt Date: 20240325
  Transmission Date: 20240409
  Serious: Yes (Hospitalization)
  Sender: FDA-Public Use
  Company Number: GB-MYLANLABS-2024M1015513

PATIENT
  Age: 70 Year
  Sex: Female

DRUGS (1)
  1. CLOZARIL [Suspect]
     Active Substance: CLOZAPINE
     Indication: Schizophrenia
     Dosage: UNK (PATIENT HAD LAST DOSE OF CLOZARIL AROUND 15-MAR-2024)
     Route: 048
     Dates: start: 20231017, end: 202403

REACTIONS (7)
  - Mental impairment [Unknown]
  - Confusional state [Unknown]
  - Apathy [Unknown]
  - Social avoidant behaviour [Unknown]
  - Differential white blood cell count abnormal [Unknown]
  - Eosinophilia [Unknown]
  - Treatment noncompliance [Unknown]

NARRATIVE: CASE EVENT DATE: 20240213
